FAERS Safety Report 20812810 (Version 39)
Quarter: 2023Q1

REPORT INFORMATION
  Report Type: Other
  Country: GB (occurrence: GB)
  Receive Date: 20220511
  Receipt Date: 20230202
  Transmission Date: 20230418
  Serious: Yes (Life-Threatening, Hospitalization, Disabling, Other)
  Sender: FDA-Public Use
  Company Number: GB-MHRA-WEBCOVID-202202061845427580-W3GBM

PATIENT
  Age: 54 Year
  Sex: Female
  Weight: 80 kg

DRUGS (27)
  1. TRIMETHOPRIM [Interacting]
     Active Substance: TRIMETHOPRIM
     Indication: Urinary tract infection
     Dosage: 200 MG, QD
     Route: 048
     Dates: start: 20190118, end: 20190120
  2. TRIMETHOPRIM [Interacting]
     Active Substance: TRIMETHOPRIM
     Dosage: 400 MG
     Route: 048
     Dates: start: 20190118, end: 20190120
  3. TRIMETHOPRIM [Interacting]
     Active Substance: TRIMETHOPRIM
     Dosage: UNK
     Route: 048
     Dates: start: 20190120, end: 20190120
  4. TRIMETHOPRIM [Interacting]
     Active Substance: TRIMETHOPRIM
     Dosage: 1200 MG, QD
     Route: 048
     Dates: start: 20190118, end: 20190120
  5. TRIMETHOPRIM [Interacting]
     Active Substance: TRIMETHOPRIM
     Dosage: 200 MG, QD
     Route: 048
     Dates: start: 20190118, end: 20190120
  6. LANSOPRAZOLE [Interacting]
     Active Substance: LANSOPRAZOLE
     Indication: Reflux laryngitis
     Dosage: UNK
     Route: 065
  7. LANSOPRAZOLE [Interacting]
     Active Substance: LANSOPRAZOLE
     Indication: Pruritus
     Dosage: UNK
     Route: 065
  8. LANSOPRAZOLE [Interacting]
     Active Substance: LANSOPRAZOLE
     Dosage: UNK
     Route: 065
  9. LANSOPRAZOLE [Interacting]
     Active Substance: LANSOPRAZOLE
     Dosage: UNK
     Route: 065
     Dates: end: 20211219
  10. BUTYLSCOPOLAMINE BROMIDE [Suspect]
     Active Substance: BUTYLSCOPOLAMINE BROMIDE
     Indication: Product used for unknown indication
     Dosage: UNK
     Route: 065
     Dates: end: 20211219
  11. MODERNA COVID-19 VACCINE [Interacting]
     Active Substance: ELASOMERAN
     Indication: COVID-19 immunisation
     Dosage: DOSE 3B
     Route: 030
     Dates: start: 20211204
  12. MODERNA COVID-19 VACCINE [Interacting]
     Active Substance: ELASOMERAN
     Dosage: 1 DOSAGE FORM
     Route: 065
     Dates: start: 20211204
  13. MODERNA COVID-19 VACCINE [Interacting]
     Active Substance: ELASOMERAN
     Dosage: 1 DOSAGE FORM, DOSE 3, SINGLE
     Route: 065
     Dates: start: 20211204, end: 20211204
  14. DOMPERIDONE [Interacting]
     Active Substance: DOMPERIDONE
     Indication: Product used for unknown indication
     Dosage: UNK
     Route: 065
  15. DOMPERIDONE [Interacting]
     Active Substance: DOMPERIDONE
     Dosage: UNK
     Route: 065
  16. DOMPERIDONE [Interacting]
     Active Substance: DOMPERIDONE
     Dosage: UNK
     Route: 065
  17. DOMPERIDONE [Interacting]
     Active Substance: DOMPERIDONE
     Dosage: UNK
     Route: 065
  18. DOMPERIDONE [Interacting]
     Active Substance: DOMPERIDONE
     Dosage: UNK
     Route: 048
     Dates: end: 20211219
  19. SOLIFENACIN [Interacting]
     Active Substance: SOLIFENACIN
     Indication: Product used for unknown indication
     Dosage: UNK
     Route: 048
  20. OMEPRAZOLE [Interacting]
     Active Substance: OMEPRAZOLE
     Indication: Reflux laryngitis
     Dosage: 20 MG
     Route: 065
  21. OMEPRAZOLE [Interacting]
     Active Substance: OMEPRAZOLE
     Indication: Gastrooesophageal reflux disease
     Dosage: 20 MG
     Route: 048
     Dates: start: 20190118, end: 20190120
  22. OMEPRAZOLE [Interacting]
     Active Substance: OMEPRAZOLE
     Dosage: 200 MG, QD
     Route: 048
     Dates: start: 20190118, end: 20190120
  23. IMODIUM [Suspect]
     Active Substance: LOPERAMIDE HYDROCHLORIDE
     Indication: Product used for unknown indication
     Dosage: UNK
     Route: 065
  24. CODEINE [Suspect]
     Active Substance: CODEINE
     Indication: Product used for unknown indication
     Dosage: UNK
     Route: 065
     Dates: start: 20220121
  25. BP (BLOOD PRESSURE) [Concomitant]
     Indication: Product used for unknown indication
     Dosage: UNK
     Route: 065
     Dates: end: 20220121
  26. BECLOMETHASONE DIPROPIONATE [Concomitant]
     Active Substance: BECLOMETHASONE DIPROPIONATE
     Indication: Product used for unknown indication
     Dosage: UNK
     Route: 065
     Dates: end: 20210102
  27. DULOXETINE [Concomitant]
     Active Substance: DULOXETINE
     Indication: Product used for unknown indication
     Dosage: UNK
     Route: 065

REACTIONS (24)
  - Food poisoning [Not Recovered/Not Resolved]
  - Illness [Recovering/Resolving]
  - Nightmare [Not Recovered/Not Resolved]
  - Gastrointestinal pain [Not Recovered/Not Resolved]
  - Contusion [Not Recovered/Not Resolved]
  - Diarrhoea [Recovered/Resolved]
  - Peripheral swelling [Unknown]
  - Dementia [Unknown]
  - Vomiting [Unknown]
  - Irritable bowel syndrome [Unknown]
  - Blood sodium decreased [Unknown]
  - Blood potassium decreased [Unknown]
  - Condition aggravated [Unknown]
  - Malaise [Unknown]
  - Mucosal inflammation [Recovered/Resolved]
  - Genital ulceration [Recovered/Resolved]
  - Genital pain [Recovered/Resolved]
  - Abdominal pain [Recovering/Resolving]
  - Abdominal pain upper [Recovered/Resolved]
  - Oral pain [Recovering/Resolving]
  - Drug interaction [Unknown]
  - Feeling abnormal [Unknown]
  - Inflammatory marker increased [Unknown]
  - Abdominal distension [Unknown]

NARRATIVE: CASE EVENT DATE: 20190121
